FAERS Safety Report 6942439-6 (Version None)
Quarter: 2010Q3

REPORT INFORMATION
  Report Type: 
  Country: None (occurrence: None)
  Receive Date: 20100826
  Receipt Date: 20100812
  Transmission Date: 20110219
  Serious: Yes (Other)
  Sender: FDA-Public Use
  Company Number: PHHY2010CA53421

PATIENT
  Sex: Female

DRUGS (3)
  1. ZOMETA [Suspect]
     Indication: BREAST CANCER
     Dosage: 04 MG, EVERY 4 WEEKS
     Dates: start: 20100511
  2. ACETAMINOPHEN [Concomitant]
  3. LYRICA [Concomitant]

REACTIONS (1)
  - PAIN IN JAW [None]
